FAERS Safety Report 19438952 (Version 2)
Quarter: 2021Q3

REPORT INFORMATION
  Report Type: Spontaneous
  Country: AT (occurrence: AT)
  Receive Date: 20210619
  Receipt Date: 20210703
  Transmission Date: 20211014
  Serious: Yes (Hospitalization, Other)
  Sender: FDA-Public Use
  Company Number: AT-MACLEODS PHARMACEUTICALS US LTD-MAC2021031522

PATIENT

DRUGS (2)
  1. PROLIA [Suspect]
     Active Substance: DENOSUMAB
     Indication: PRODUCT USED FOR UNKNOWN INDICATION
     Dosage: 60 MILLIGRAM, 1 TOTAL
     Route: 058
  2. TENOFOVIR [Suspect]
     Active Substance: TENOFOVIR
     Indication: HEPATITIS B
     Dosage: 1 DOSAGE FORM, QD, VIREAD 245 MG FILM?COATED TABLETS
     Route: 048

REACTIONS (10)
  - Femoral neck fracture [Recovered/Resolved]
  - Tibia fracture [Recovered/Resolved]
  - Pathological fracture [Recovered/Resolved]
  - Proteinuria [Recovered/Resolved]
  - Hypophosphataemic osteomalacia [Recovered/Resolved]
  - Condition aggravated [Recovered/Resolved]
  - Hypouricaemia [Recovered/Resolved]
  - Glycosuria [Recovered/Resolved]
  - Foot fracture [Recovered/Resolved]
  - Fanconi syndrome [Recovered/Resolved]
